FAERS Safety Report 9351743 (Version 2)
Quarter: 2013Q3

REPORT INFORMATION
  Report Type: Spontaneous
  Country: CH (occurrence: CH)
  Receive Date: 20130617
  Receipt Date: 20130710
  Transmission Date: 20140515
  Serious: Yes (Other)
  Sender: FDA-Public Use
  Company Number: CH-BIOGENIDEC-2013BI051826

PATIENT
  Age: 0 Day
  Sex: Male
  Weight: 2 kg

DRUGS (2)
  1. TYSABRI [Suspect]
     Indication: MATERNAL EXPOSURE TIMING UNSPECIFIED
     Route: 064
     Dates: start: 20090313, end: 2011
  2. TYSABRI [Suspect]
     Indication: MATERNAL EXPOSURE TIMING UNSPECIFIED
     Route: 064
     Dates: end: 20120814

REACTIONS (2)
  - Low birth weight baby [Recovered/Resolved]
  - Hyperbilirubinaemia [Recovered/Resolved]
